FAERS Safety Report 6887697-1 (Version None)
Quarter: 2010Q3

REPORT INFORMATION
  Report Type: 
  Country: None (occurrence: None)
  Receive Date: 20100730
  Receipt Date: 20100722
  Transmission Date: 20110219
  Serious: Yes (Death)
  Sender: FDA-Public Use
  Company Number: US-AMGEN-QUU423070

PATIENT
  Sex: Male

DRUGS (3)
  1. NPLATE [Suspect]
     Indication: THROMBOCYTOPENIA
     Dates: start: 20100701, end: 20100707
  2. CORTICOSTEROIDS [Concomitant]
  3. IMMU-G [Concomitant]

REACTIONS (3)
  - HYPERTENSIVE CRISIS [None]
  - HYPOTENSION [None]
  - REFUSAL OF TREATMENT BY RELATIVE [None]
